FAERS Safety Report 4925989-3 (Version None)
Quarter: 2006Q1

REPORT INFORMATION
  Report Type: 
  Country: None (occurrence: None)
  Receive Date: 20060228
  Receipt Date: 20050719
  Transmission Date: 20060701
  Serious: No
  Sender: FDA-Public Use
  Company Number: US-GLAXOSMITHKLINE-A0566896A

PATIENT
  Age: 58 Year
  Sex: Female

DRUGS (12)
  1. LAMICTAL [Suspect]
     Indication: HEADACHE
     Dosage: 100MG PER DAY
     Route: 048
     Dates: start: 20050615
  2. AVANDAMET [Suspect]
     Route: 048
  3. CALAN [Concomitant]
  4. MICARDIS [Concomitant]
  5. ZYRTEC [Concomitant]
  6. ASTELIN [Concomitant]
  7. NASACORT [Concomitant]
  8. TOPAMAX [Concomitant]
  9. MIDRIN [Concomitant]
  10. AXERT [Concomitant]
  11. ACTONEL [Concomitant]
  12. NEXIUM [Concomitant]

REACTIONS (5)
  - DRUG INEFFECTIVE [None]
  - MIGRAINE [None]
  - PHOTOSENSITIVITY REACTION [None]
  - RASH [None]
  - THERAPEUTIC RESPONSE UNEXPECTED [None]
